FAERS Safety Report 9088145 (Version 1)
Quarter: 2013Q1

REPORT INFORMATION
  Report Type: Report from Study
  Country: CA (occurrence: CA)
  Receive Date: 20130201
  Receipt Date: 20130201
  Transmission Date: 20140127
  Serious: Yes (Hospitalization, Other)
  Sender: FDA-Public Use
  Company Number: CA-ROCHE-1077590

PATIENT
  Age: 64 Year
  Sex: Female
  Weight: 59.02 kg

DRUGS (1)
  1. XELODA [Suspect]
     Indication: COLORECTAL CANCER
     Dosage: UNKNOWN
     Route: 048
     Dates: end: 20120529

REACTIONS (4)
  - Syncope [Unknown]
  - Stomatitis [Recovering/Resolving]
  - Pyrexia [Not Recovered/Not Resolved]
  - Abdominal pain upper [Recovering/Resolving]
